FAERS Safety Report 20253747 (Version 2)
Quarter: 2022Q1

REPORT INFORMATION
  Report Type: Report from Study
  Country: GB (occurrence: GB)
  Receive Date: 20211230
  Receipt Date: 20220216
  Transmission Date: 20220423
  Serious: Yes (Other)
  Sender: FDA-Public Use
  Company Number: GB-JNJFOC-20210809236

PATIENT
  Age: 25 Year
  Sex: Male

DRUGS (2)
  1. STELARA [Suspect]
     Active Substance: USTEKINUMAB
     Indication: Crohn^s disease
     Route: 058
  2. STELARA [Suspect]
     Active Substance: USTEKINUMAB
     Route: 058

REACTIONS (8)
  - Gastrointestinal obstruction [Unknown]
  - Colostomy [Unknown]
  - Nasopharyngitis [Unknown]
  - Perforation [Unknown]
  - Product use issue [Unknown]
  - Off label use [Unknown]
  - Wound complication [Unknown]
  - Injection site pain [Unknown]

NARRATIVE: CASE EVENT DATE: 20220210
